FAERS Safety Report 9066896 (Version 1)
Quarter: 2013Q1

REPORT INFORMATION
  Report Type: Spontaneous
  Country: US (occurrence: US)
  Receive Date: 20130214
  Receipt Date: 20130214
  Transmission Date: 20140127
  Serious: No
  Sender: FDA-Public Use
  Company Number: US-PFIZER INC-2013057383

PATIENT
  Age: 65 Year
  Sex: Female
  Weight: 73 kg

DRUGS (4)
  1. LYRICA [Suspect]
     Indication: NEURALGIA
     Dosage: 75 MG, 1X/DAY
     Route: 048
  2. LYRICA [Suspect]
     Dosage: 100 MG(TWO CAPSULES OF 50MG), 1X/DAY
     Route: 048
  3. AVONEX [Concomitant]
     Dosage: UNK, WEEKLY
  4. CARISOPRODOL [Concomitant]
     Dosage: UNK

REACTIONS (3)
  - Pain [Unknown]
  - Drug ineffective [Unknown]
  - Local swelling [Unknown]
